FAERS Safety Report 5908151-7 (Version None)
Quarter: 2008Q4

REPORT INFORMATION
  Report Type: 
  Country: None (occurrence: None)
  Receive Date: 20081003
  Receipt Date: 20080923
  Transmission Date: 20090506
  Serious: Yes (Other)
  Sender: FDA-Public Use
  Company Number: US-PFIZER INC-2008082030

PATIENT
  Sex: Male

DRUGS (4)
  1. CHANTIX [Suspect]
     Dates: start: 20080814
  2. LOVAZA [Concomitant]
  3. ACETYLSALICYLIC ACID SRT [Concomitant]
  4. OPIOIDS [Concomitant]

REACTIONS (4)
  - CONFUSIONAL STATE [None]
  - PERIPHERAL VASCULAR DISORDER [None]
  - VASCULAR GRAFT [None]
  - VIOLENCE-RELATED SYMPTOM [None]
